FAERS Safety Report 7641770-9 (Version None)
Quarter: 2011Q3

REPORT INFORMATION
  Report Type: 
  Country: None (occurrence: None)
  Receive Date: 20110727
  Receipt Date: 20110727
  Transmission Date: 20111222
  Serious: Yes (Hospitalization)
  Sender: FDA-Public Use
  Company Number: None

PATIENT
  Sex: Female
  Weight: 73.6 kg

DRUGS (2)
  1. PACLITAXEL [Suspect]
     Dosage: 318 MG
     Dates: end: 20110628
  2. TOPOTECAN [Suspect]
     Dosage: 4.08 MG
     Dates: end: 20110630

REACTIONS (2)
  - PYREXIA [None]
  - ANAEMIA [None]
